FAERS Safety Report 23569132 (Version 2)
Quarter: 2024Q1

REPORT INFORMATION
  Report Type: Report from Study
  Country: US (occurrence: US)
  Receive Date: 20240227
  Receipt Date: 20240306
  Transmission Date: 20240410
  Serious: Yes (Other)
  Sender: FDA-Public Use
  Company Number: US-ABBVIE-5581157

PATIENT
  Sex: Female

DRUGS (1)
  1. VENCLEXTA [Suspect]
     Active Substance: VENETOCLAX
     Indication: White blood cell count increased
     Dosage: TAKE 4 TABLET(S) BY MOUTH DAILY??FORM STRENGTH: 100 MILLIGRAMS
     Route: 048

REACTIONS (5)
  - Malignant melanoma [Unknown]
  - Sinusitis [Unknown]
  - Herpes zoster [Unknown]
  - Brain fog [Not Recovered/Not Resolved]
  - Amnesia [Unknown]
